FAERS Safety Report 24305909 (Version 2)
Quarter: 2024Q4

REPORT INFORMATION
  Report Type: Spontaneous
  Country: ES (occurrence: ES)
  Receive Date: 20240911
  Receipt Date: 20241002
  Transmission Date: 20250114
  Serious: Yes (Death, Other)
  Sender: TAKEDA
  Company Number: ES-TAKEDA-2024TUS089355

PATIENT
  Age: 34 Year
  Sex: Female

DRUGS (1)
  1. HYQVIA [Suspect]
     Active Substance: HUMAN IMMUNOGLOBULIN G\HYALURONIDASE (HUMAN RECOMBINANT)
     Indication: Thymoma
     Dosage: 30 GRAM, MONTHLY
     Route: 065
     Dates: start: 202406

REACTIONS (2)
  - Thymoma [Fatal]
  - Product use in unapproved indication [Unknown]

NARRATIVE: CASE EVENT DATE: 20240601
